FAERS Safety Report 6199622-X (Version None)
Quarter: 2009Q2

REPORT INFORMATION
  Report Type: 
  Country: None (occurrence: None)
  Receive Date: 20090522
  Receipt Date: 20080724
  Transmission Date: 20091009
  Serious: No
  Sender: FDA-Public Use
  Company Number: A0739570A

PATIENT
  Age: 32 Year
  Sex: Female

DRUGS (2)
  1. BACTROBAN [Suspect]
     Indication: SKIN INFECTION
     Route: 061
     Dates: start: 20080721, end: 20080723
  2. CEPHALEXIN [Concomitant]

REACTIONS (4)
  - BURNING SENSATION [None]
  - ERYTHEMA [None]
  - PRURITUS [None]
  - RASH [None]
